FAERS Safety Report 22661822 (Version 1)
Quarter: 2023Q2

REPORT INFORMATION
  Report Type: Report from Study
  Country: US (occurrence: US)
  Receive Date: 20230630
  Receipt Date: 20230630
  Transmission Date: 20230721
  Serious: Yes (Hospitalization, Other)
  Sender: FDA-Public Use
  Company Number: US-JCAR017-FOL-001-1041002-20200928-0001SG

PATIENT
  Age: 73 Year
  Sex: Male
  Weight: 76 kg

DRUGS (14)
  1. FLUDARABINE [Concomitant]
     Active Substance: FLUDARABINE PHOSPHATE
     Indication: Follicular lymphoma
     Route: 042
     Dates: start: 20200916, end: 20200918
  2. CYCLOPHOSPHAMIDE [Concomitant]
     Active Substance: CYCLOPHOSPHAMIDE
     Indication: Follicular lymphoma
     Route: 042
     Dates: start: 20200916, end: 20200918
  3. CEFEPIME [Concomitant]
     Active Substance: CEFEPIME HYDROCHLORIDE
     Indication: Prophylaxis
     Dosage: 1,000 MG X 1 X 12 HOURS
     Route: 042
     Dates: start: 20200928, end: 20200929
  4. DIPHENHYDRAMINE (BENADRYL) [Concomitant]
     Indication: Pruritus
     Dosage: FREQUENCY TEXT: ONCE?50 MG/DOSE X ONCE
     Route: 048
     Dates: start: 20200728
  5. LOVENOX [Concomitant]
     Active Substance: ENOXAPARIN SODIUM
     Indication: Prophylaxis
     Dosage: 80 MG X 1 X 12 HOURS
     Route: 058
     Dates: start: 20200921, end: 20201006
  6. PEPCID [Concomitant]
     Active Substance: FAMOTIDINE
     Indication: Prophylaxis
     Dosage: 20 MG X 2 X 1 DAYS
     Route: 048
     Dates: start: 20200922, end: 20201006
  7. LACTULOSE [Concomitant]
     Active Substance: LACTULOSE
     Indication: Prophylaxis
     Dosage: FREQUENCY TEXT: PRN?10 G X PRN
     Route: 048
     Dates: start: 20200925, end: 20201006
  8. KEPPRA [Concomitant]
     Active Substance: LEVETIRACETAM
     Indication: Prophylaxis
     Dosage: 500 MG X 1 X 1 DAYS
     Route: 048
     Dates: start: 20200922, end: 20201006
  9. LEVOTHYROXINE (SYNTHROID, LEVOTHROID) [Concomitant]
     Indication: Hypothyroidism
     Dosage: 150 MG X 1 X 1 DAYS
     Route: 048
     Dates: start: 20030210
  10. PENTAMADINE [Concomitant]
     Indication: Prophylaxis
     Dosage: 4 MG X 1 X 1 DAYS
     Route: 017
     Dates: start: 20200920, end: 20200920
  11. VANCOMYCIN [Concomitant]
     Active Substance: VANCOMYCIN
     Indication: Prophylaxis
     Dosage: 2,000 MG X 1 X 12 HOURS
     Route: 042
     Dates: start: 20200928, end: 20200929
  12. ZOFRAN [Concomitant]
     Active Substance: ONDANSETRON HYDROCHLORIDE
     Indication: Nausea
     Route: 042
     Dates: start: 20200921, end: 20201006
  13. MIRALAX [Concomitant]
     Active Substance: POLYETHYLENE GLYCOL 3350
     Indication: Constipation
     Route: 048
     Dates: start: 20200919, end: 20201006
  14. SENOKOT-S [Concomitant]
     Active Substance: DOCUSATE SODIUM\SENNOSIDES
     Indication: Constipation
     Route: 048
     Dates: start: 20200922, end: 20201006

REACTIONS (2)
  - Neurotoxicity [Recovered/Resolved]
  - Cytokine release syndrome [Recovered/Resolved]

NARRATIVE: CASE EVENT DATE: 20200928
